FAERS Safety Report 9066025 (Version 2)
Quarter: 2013Q2

REPORT INFORMATION
  Report Type: Spontaneous
  Country: AU (occurrence: AU)
  Receive Date: 20130201
  Receipt Date: 20130417
  Transmission Date: 20140414
  Serious: Yes (Hospitalization)
  Sender: FDA-Public Use
  Company Number: AU-009507513-1301AUS012039

PATIENT
  Age: 50 Year
  Sex: Female
  Weight: 81 kg

DRUGS (5)
  1. SAPHRIS [Suspect]
     Dosage: 10 UNK, UNK
     Route: 060
     Dates: start: 20130114, end: 201301
  2. SAPHRIS [Suspect]
     Dosage: 5 MG, UNK
     Route: 060
     Dates: start: 20130111, end: 20130114
  3. SAPHRIS [Suspect]
     Dosage: 2.5 UNK, UNK
     Route: 060
     Dates: start: 2013
  4. LITHIUM CARBONATE [Suspect]
     Dosage: 750 MG, UNK
  5. CYMBALTA [Suspect]
     Dosage: 60 MG, UNK

REACTIONS (2)
  - Hypomania [Recovering/Resolving]
  - Drug ineffective [Unknown]
